FAERS Safety Report 8521200-5 (Version None)
Quarter: 2012Q3

REPORT INFORMATION
  Report Type: 
  Country: None (occurrence: None)
  Receive Date: 20120719
  Receipt Date: 20120710
  Transmission Date: 20120928
  Serious: Yes (Death, Life-Threatening)
  Sender: FDA-Public Use
  Company Number: FR-ROCHE-1086576

PATIENT
  Sex: Male

DRUGS (2)
  1. XELODA [Suspect]
     Indication: PRODUCT USED FOR UNKNOWN INDICATION
     Route: 048
     Dates: start: 20120621, end: 20120629
  2. ATORVASTATIN [Concomitant]
     Indication: DYSLIPIDAEMIA

REACTIONS (2)
  - CARDIO-RESPIRATORY ARREST [None]
  - CHEST PAIN [None]
